FAERS Safety Report 9502749 (Version 1)
Quarter: 2013Q3

REPORT INFORMATION
  Report Type: Report from Study
  Country: CA (occurrence: CA)
  Receive Date: 20130906
  Receipt Date: 20130906
  Transmission Date: 20140515
  Serious: Yes (Death, Other)
  Sender: FDA-Public Use
  Company Number: CA-JNJFOC-20130901573

PATIENT
  Sex: Male
  Weight: 70 kg

DRUGS (2)
  1. ZYTIGA [Suspect]
     Indication: PROSTATE CANCER
     Dosage: 250 MG X 4
     Route: 048
     Dates: start: 201302
  2. PREDNISONE [Concomitant]
     Indication: PROSTATE CANCER
     Route: 048
     Dates: start: 201302

REACTIONS (13)
  - Death [Fatal]
  - Convulsion [Unknown]
  - Urinary retention [Unknown]
  - Spinal cord compression [Unknown]
  - Hallucination [Unknown]
  - Memory impairment [Unknown]
  - Bulbar palsy [Unknown]
  - Coma [Unknown]
  - Paraplegia [Unknown]
  - Condition aggravated [Unknown]
  - Hypokalaemia [Unknown]
  - Disturbance in attention [Unknown]
  - Oedema peripheral [Unknown]
